FAERS Safety Report 4314588-2 (Version None)
Quarter: 2004Q1

REPORT INFORMATION
  Report Type: 
  Country: None (occurrence: None)
  Receive Date: 20040308
  Receipt Date: 20040224
  Transmission Date: 20041129
  Serious: Yes (Death)
  Sender: FDA-Public Use
  Company Number: BE-JNJFOC-20040200117

PATIENT
  Age: 58 Year
  Sex: Male

DRUGS (24)
  1. CISAPRIDE (CISAPRIDE) TABLETS [Suspect]
     Indication: DIABETIC GASTROPARESIS
     Dosage: 10 MG, 4 IN 1 DAY
     Dates: start: 20030724
  2. PROZAC (UNKNOWN) FLUOXETINE HYDROCHLORIDE [Concomitant]
  3. LIPITOR (UNKNOWN) ATORVASTATIN [Concomitant]
  4. TICLOPIDINE (TICLOPIDINE) UNKNOWN [Concomitant]
  5. CORDARONE (AMIODARONE HYDROCHLORIDE) UNKNOWN [Concomitant]
  6. FERROGRAD (FERROUS SULFATE EXSICCATED) UNKNOWN [Concomitant]
  7. TILDIEM (DILTIAZEM HYDROCHLORIDE) UNKNOWN [Concomitant]
  8. XANTHIUM (THEOPHYLLINE) UNKNOWN [Concomitant]
  9. CORVATARD (MOLSIDOMINE) UNKNOWN [Concomitant]
  10. ZANTAC (RANITIDINE HYDROCHLORIDE) UNKNOWN [Concomitant]
  11. BURINEX (BUMETANIDE) UNKNOWN [Concomitant]
  12. CALCIUM CARBONATE (CALCIUM CARBONATE) UNKNOWN [Concomitant]
  13. DIAFUSOR (GLYCERYL TRINITRATE) UNKNOWN [Concomitant]
  14. ALDACTONE (SPIRONOLACTONE) UNKNOWN [Concomitant]
  15. FLUNITRAZEPAM (FLUNITRAZEPAM) UNKNOWN [Concomitant]
  16. ACTRAPID (INSULIN HUMAN) UNKNOWN [Concomitant]
  17. EUTHYROX (LEVOTHYROXINE SODIUM) UNKNOWN [Concomitant]
  18. INSULATARD (INSULIN HUMAN INJECTION, ISOPHANE) UNKNOWN [Concomitant]
  19. DUOVENT AEROSOL (DUOVENT) UNKNOWN [Concomitant]
  20. SERETIDE (SERETIDE) UNKNOWN [Concomitant]
  21. MARCOUMAR (PHENPROCOUMON) UNKNOWN [Concomitant]
  22. MEDROL (METHYLPREDNISOLONE) UNKNOWN [Concomitant]
  23. AUGMENTIN (CLAVULIN) UNKNOWN [Concomitant]
  24. ACTRAPID (INSULIN HUMAN) INJECTION [Concomitant]

REACTIONS (3)
  - MYOCARDIAL INFARCTION [None]
  - PULMONARY OEDEMA [None]
  - SUDDEN DEATH [None]
